FAERS Safety Report 4405268-3 (Version None)
Quarter: 2004Q3

REPORT INFORMATION
  Report Type: 
  Country: None (occurrence: None)
  Receive Date: 20040715
  Receipt Date: 20040713
  Transmission Date: 20050211
  Serious: Yes (Death)
  Sender: FDA-Public Use
  Company Number: A044-002-004972

PATIENT
  Age: 88 Year
  Sex: Female
  Weight: 56 kg

DRUGS (8)
  1. ARICEPT [Suspect]
     Indication: DEMENTIA ALZHEIMER'S TYPE
     Dosage: 5 MG, 1 IN 1 D, ORAL
     Route: 048
     Dates: start: 20040329
  2. PAROXETINE HCL [Concomitant]
  3. DIGOXIN [Concomitant]
  4. PERINDOPRIL [Concomitant]
  5. THYROXINE (LEVOTHYROXINE SODIUM) [Concomitant]
  6. ASPIRIN [Concomitant]
  7. FOLIC ACID [Concomitant]
  8. CALCICHEW D3 (LEKOVIT CA) [Concomitant]

REACTIONS (5)
  - CARDIAC FAILURE [None]
  - CARDIOMEGALY [None]
  - FALL [None]
  - RENAL CELL CARCINOMA STAGE UNSPECIFIED [None]
  - VENTRICULAR HYPERTROPHY [None]
